FAERS Safety Report 16732574 (Version 1)
Quarter: 2019Q3

REPORT INFORMATION
  Report Type: Spontaneous
  Country: GB (occurrence: GB)
  Receive Date: 20190823
  Receipt Date: 20190823
  Transmission Date: 20191005
  Serious: Yes (Hospitalization, Disabling, Other)
  Sender: FDA-Public Use
  Company Number: PHHY2019GB191735

PATIENT
  Age: 30 Year
  Sex: Male
  Weight: 77.56 kg

DRUGS (3)
  1. TEGRETOL [Suspect]
     Active Substance: CARBAMAZEPINE
     Dosage: 500 MG, UNK
     Route: 048
  2. PENTASA [Suspect]
     Active Substance: MESALAMINE
     Indication: PRODUCT USED FOR UNKNOWN INDICATION
     Dosage: 3000 MG, QD
     Route: 048
     Dates: start: 20060913
  3. TEGRETOL [Suspect]
     Active Substance: CARBAMAZEPINE
     Indication: EPILEPSY
     Dosage: UNK
     Route: 048

REACTIONS (10)
  - Epilepsy [Recovered/Resolved with Sequelae]
  - Hypoaesthesia [Unknown]
  - Asthenia [Recovered/Resolved with Sequelae]
  - Eye pain [Unknown]
  - Nausea [Recovered/Resolved with Sequelae]
  - Dizziness [Recovered/Resolved with Sequelae]
  - Asthenia [Unknown]
  - Vision blurred [Recovered/Resolved with Sequelae]
  - Paraesthesia [Unknown]
  - Disturbance in attention [Unknown]

NARRATIVE: CASE EVENT DATE: 20141123
